FAERS Safety Report 9341915 (Version 7)
Quarter: 2020Q2

REPORT INFORMATION
  Report Type: Report from Study
  Country: US (occurrence: US)
  Receive Date: 20130611
  Receipt Date: 20200429
  Transmission Date: 20200714
  Serious: Yes (Hospitalization, Other)
  Sender: FDA-Public Use
  Company Number: US-SANOFI-AVENTIS-2013SA058764

PATIENT
  Age: 54 Year
  Sex: Female
  Weight: 63.5 kg

DRUGS (10)
  1. TERIFLUNOMIDE. [Suspect]
     Active Substance: TERIFLUNOMIDE
     Dosage: 7 MG,QOD
     Route: 048
     Dates: start: 20130528
  2. TERIFLUNOMIDE. [Suspect]
     Active Substance: TERIFLUNOMIDE
     Dosage: 7 MG,Q3D
     Route: 065
     Dates: start: 201305, end: 2013
  3. TERIFLUNOMIDE. [Suspect]
     Active Substance: TERIFLUNOMIDE
     Dosage: 7 MG,QD
     Route: 048
     Dates: start: 20130522
  4. LOVASTATIN. [Concomitant]
     Active Substance: LOVASTATIN
     Dosage: 80 MG,QD
  5. LEVOTHYROXINE. [Concomitant]
     Active Substance: LEVOTHYROXINE
     Indication: THYROID DISORDER
     Dosage: 0.1 UG
     Route: 065
     Dates: start: 2003
  6. TERIFLUNOMIDE. [Suspect]
     Active Substance: TERIFLUNOMIDE
     Indication: MULTIPLE SCLEROSIS
     Dosage: 14 MG,QD
     Route: 048
     Dates: start: 20130501
  7. LOVASTATIN. [Concomitant]
     Active Substance: LOVASTATIN
     Indication: BLOOD CHOLESTEROL
     Dosage: 40 MG,HS
     Route: 065
     Dates: start: 2003
  8. WELLBUTRIN [Concomitant]
     Active Substance: BUPROPION HYDROCHLORIDE
     Indication: DEPRESSION
     Dosage: 200 MG,BID
     Dates: start: 1990
  9. WELLBUTRIN [Concomitant]
     Active Substance: BUPROPION HYDROCHLORIDE
     Dosage: 150 MG,BID
     Route: 065
     Dates: start: 2006
  10. BACLOFEN. [Concomitant]
     Active Substance: BACLOFEN
     Indication: MULTIPLE SCLEROSIS
     Dosage: 20 MG,BID
     Route: 065
     Dates: start: 2006

REACTIONS (8)
  - Insomnia [Recovered/Resolved]
  - Product dose omission [Unknown]
  - Psychomotor hyperactivity [Recovered/Resolved]
  - Decreased appetite [Recovered/Resolved]
  - Hypomania [Recovering/Resolving]
  - Pressure of speech [Recovered/Resolved]
  - Mania [Recovered/Resolved]
  - Flight of ideas [Recovered/Resolved]

NARRATIVE: CASE EVENT DATE: 20130521
